FAERS Safety Report 16530049 (Version 1)
Quarter: 2019Q3

REPORT INFORMATION
  Report Type: Spontaneous
  Country: US (occurrence: US)
  Receive Date: 20190704
  Receipt Date: 20190704
  Transmission Date: 20191004
  Serious: No
  Sender: FDA-Public Use
  Company Number: US-TEVA-2019-US-1069631

PATIENT
  Sex: Female

DRUGS (1)
  1. NORETHINDRONE ACETATE TABLETS TEVA [Suspect]
     Active Substance: NORETHINDRONE ACETATE
     Route: 065

REACTIONS (3)
  - Pain [Unknown]
  - Abdominal pain upper [Unknown]
  - Documented hypersensitivity to administered product [Unknown]
